FAERS Safety Report 18978156 (Version 7)
Quarter: 2022Q4

REPORT INFORMATION
  Report Type: Spontaneous
  Country: US (occurrence: US)
  Receive Date: 20210307
  Receipt Date: 20221207
  Transmission Date: 20230113
  Serious: Yes (Hospitalization)
  Sender: FDA-Public Use
  Company Number: US-SA-SAC20210302001236

PATIENT
  Age: 73 Year
  Sex: Female

DRUGS (4)
  1. DUPIXENT [Suspect]
     Active Substance: DUPILUMAB
     Indication: Psoriasis
     Dosage: 200 MG, QOW
     Route: 058
     Dates: start: 20200123
  2. DUPIXENT [Suspect]
     Active Substance: DUPILUMAB
     Indication: Asthma
  3. DUPIXENT [Suspect]
     Active Substance: DUPILUMAB
     Indication: Psoriasis
  4. ADEMPAS [Concomitant]
     Active Substance: RIOCIGUAT

REACTIONS (13)
  - Chronic obstructive pulmonary disease [Unknown]
  - Dyspnoea [Unknown]
  - Headache [Unknown]
  - Nausea [Unknown]
  - Pain in extremity [Unknown]
  - Pain [Unknown]
  - Catheterisation cardiac [Unknown]
  - Nausea [Unknown]
  - Illness [Unknown]
  - COVID-19 [Unknown]
  - Dyspnoea [Unknown]
  - Myalgia [Unknown]
  - Product use in unapproved indication [Unknown]

NARRATIVE: CASE EVENT DATE: 20200123
